FAERS Safety Report 23530982 (Version 1)
Quarter: 2024Q1

REPORT INFORMATION
  Report Type: Spontaneous
  Country: DE (occurrence: DE)
  Receive Date: 20240216
  Receipt Date: 20240216
  Transmission Date: 20240410
  Serious: Yes (Hospitalization)
  Sender: FDA-Public Use
  Company Number: DE-ROCHE-3444340

PATIENT
  Age: 36 Year
  Sex: Female

DRUGS (5)
  1. CARBOPLATIN [Suspect]
     Active Substance: CARBOPLATIN
     Indication: Diffuse large B-cell lymphoma
     Dosage: 800.000MG
     Route: 042
     Dates: start: 20231004
  2. ETOPOSIDE [Suspect]
     Active Substance: ETOPOSIDE
     Indication: Diffuse large B-cell lymphoma
     Dosage: 100.000MG/M2
     Route: 042
     Dates: start: 20231003
  3. IFOSFAMIDE [Suspect]
     Active Substance: IFOSFAMIDE
     Indication: Diffuse large B-cell lymphoma
     Dosage: 5000.000MG/M2
     Route: 042
     Dates: start: 20231004
  4. POLATUZUMAB VEDOTIN [Suspect]
     Active Substance: POLATUZUMAB VEDOTIN
     Indication: Diffuse large B-cell lymphoma
     Dosage: 1.800MG/KG
     Route: 042
     Dates: start: 20231003
  5. RITUXIMAB [Suspect]
     Active Substance: RITUXIMAB
     Indication: Diffuse large B-cell lymphoma
     Dosage: 375.000MG/M2
     Route: 042
     Dates: start: 20231003

REACTIONS (3)
  - Perineal abscess [Recovered/Resolved]
  - Anal fissure [Not Recovered/Not Resolved]
  - Perineal fistula [Recovered/Resolved]

NARRATIVE: CASE EVENT DATE: 20231013
